FAERS Safety Report 9243479 (Version 1)
Quarter: 2013Q1

REPORT INFORMATION
  Report Type: Spontaneous
  Country: US (occurrence: None)
  Receive Date: 20121123
  Receipt Date: 20121123
  Transmission Date: 20140127
  Serious: Yes (Hospitalization, Other)
  Sender: FDA-Public Use
  Company Number: 360332

PATIENT
  Age: 71 Year
  Sex: Female
  Weight: 129.3 kg

DRUGS (15)
  1. VICTOZA [Suspect]
     Indication: TYPE 2 DIABETES MELLITUS
     Route: 058
     Dates: start: 20110623, end: 201205
  2. PRAVASTATIN ( PRAVASTATIN) [Concomitant]
  3. GLIMEPIRIDE ( GLIMEPIRIDE) [Concomitant]
  4. AMITRIPTYLINE ( AMITRIPTYLINE) [Concomitant]
  5. CARDIZEM (DILTIAZEM) (UNKNOWN) (DILTIAZEM) [Concomitant]
  6. LASIX ( FUROSEMIDE) [Concomitant]
  7. METOPROLOL ( METOPROLOL) [Concomitant]
  8. WARFARIN ( WARFARIN) [Concomitant]
  9. FOLIC ACID ( FOLIC ACID) [Concomitant]
  10. VITAMIN B12 ( CYANOCOBALAMIN) [Concomitant]
  11. FLONASE ( FLUTICASONE PROPIONATE) [Concomitant]
  12. MUCINEX (GUAIFENESIN) [Concomitant]
  13. TUMS ( CALCIUM CARBONATE, MAGNESIUM CARBONATE, MAGNESIUM TRISILICATE) [Concomitant]
  14. LISINOPRIL ( LISINOPRIL) [Concomitant]
  15. ALLOPURINOL ( ALLOPURINOL) [Concomitant]

REACTIONS (2)
  - Thyroid cancer [None]
  - Vomiting [None]
